FAERS Safety Report 23189858 (Version 1)
Quarter: 2023Q4

REPORT INFORMATION
  Report Type: Spontaneous
  Country: NO (occurrence: NO)
  Receive Date: 20231116
  Receipt Date: 20231116
  Transmission Date: 20240110
  Serious: Yes (Death, Other)
  Sender: FDA-Public Use
  Company Number: NO-SA-SAC20231115000753

PATIENT
  Age: 42 Year
  Sex: Female

DRUGS (2)
  1. ZOLPIDEM TARTRATE [Suspect]
     Active Substance: ZOLPIDEM TARTRATE
     Indication: Sedation
     Dosage: UNK
     Route: 048
  2. BARIUM ACETATE [Suspect]
     Active Substance: BARIUM ACETATE
     Dosage: UNK

REACTIONS (2)
  - Asphyxia [Fatal]
  - Toxicity to various agents [Fatal]

NARRATIVE: CASE EVENT DATE: 20170425
